FAERS Safety Report 8529648-X (Version None)
Quarter: 2012Q3

REPORT INFORMATION
  Report Type: 
  Country: None (occurrence: None)
  Receive Date: 20120717
  Receipt Date: 20120717
  Transmission Date: 20120928
  Serious: No
  Sender: FDA-Public Use
  Company Number: None

PATIENT

DRUGS (2)
  1. SULFAMYLON [Suspect]
     Dosage: CREAM TOPICAL JAR 150Z
     Route: 061
  2. SILVER SULFADIAZINE [Suspect]
     Dosage: CREAM TOPICAL 1% JAR

REACTIONS (2)
  - MEDICATION ERROR [None]
  - CIRCUMSTANCE OR INFORMATION CAPABLE OF LEADING TO MEDICATION ERROR [None]
